FAERS Safety Report 4874053-0 (Version None)
Quarter: 2005Q4

REPORT INFORMATION
  Report Type: 
  Country: None (occurrence: None)
  Receive Date: 20051201
  Receipt Date: 20050805
  Transmission Date: 20060501
  Serious: No
  Sender: FDA-Public Use
  Company Number: 2005PV000944

PATIENT
  Sex: Male

DRUGS (4)
  1. BYETTA [Suspect]
     Indication: DIABETES MELLITUS
     Dosage: 5 MCG; SC
     Route: 058
  2. LANTUS [Concomitant]
  3. ACTOS [Concomitant]
  4. GLUCOVANCE [Concomitant]

REACTIONS (4)
  - BLOOD GLUCOSE INCREASED [None]
  - FAMILY STRESS [None]
  - NAUSEA [None]
  - SICK RELATIVE [None]
